FAERS Safety Report 4943469-6 (Version None)
Quarter: 2006Q1

REPORT INFORMATION
  Report Type: 
  Country: None (occurrence: None)
  Receive Date: 20060309
  Receipt Date: 20060227
  Transmission Date: 20060701
  Serious: Yes (Other)
  Sender: FDA-Public Use
  Company Number: 2006028875

PATIENT
  Age: 66 Year
  Sex: Female

DRUGS (3)
  1. GEODON [Suspect]
     Indication: AGITATION
     Dosage: 10 MG (10 MG, 1 IN 1D), INTRAMUSCULAR
     Route: 030
     Dates: start: 20060218, end: 20060218
  2. ATIVAN [Concomitant]
  3. HALDOL SOLUTAB [Concomitant]

REACTIONS (3)
  - CARDIAC ARREST [None]
  - INSOMNIA [None]
  - ORAL INTAKE REDUCED [None]
